FAERS Safety Report 5644794-6 (Version None)
Quarter: 2008Q1

REPORT INFORMATION
  Report Type: 
  Country: None (occurrence: None)
  Receive Date: 20080229
  Receipt Date: 20070807
  Transmission Date: 20080703
  Serious: No
  Sender: FDA-Public Use
  Company Number: A0668659A

PATIENT
  Age: 27 Year
  Sex: Female

DRUGS (3)
  1. VALTREX [Suspect]
     Indication: GENITAL HERPES
     Dosage: 500MG PER DAY
     Route: 048
     Dates: start: 20060701
  2. ZYRTEC [Concomitant]
  3. BIRTH CONTROL PILL [Concomitant]

REACTIONS (6)
  - AGITATION [None]
  - DELIVERY [None]
  - DRUG EXPOSURE DURING PREGNANCY [None]
  - EXPIRED DRUG ADMINISTERED [None]
  - PHARMACEUTICAL PRODUCT COMPLAINT [None]
  - THROAT IRRITATION [None]
